FAERS Safety Report 5724775-4 (Version None)
Quarter: 2008Q2

REPORT INFORMATION
  Report Type: 
  Country: None (occurrence: None)
  Receive Date: 20080501
  Receipt Date: 20080501
  Transmission Date: 20081010
  Serious: Yes (Other)
  Sender: FDA-Public Use
  Company Number: None

PATIENT
  Weight: 8 kg

DRUGS (1)
  1. HEPARIN [Suspect]
     Indication: TETRALOGY OF FALLOT REPAIR
     Dosage: IV DRIP
     Route: 041
     Dates: start: 20080225, end: 20080228

REACTIONS (1)
  - HEPARIN-INDUCED THROMBOCYTOPENIA [None]
